FAERS Safety Report 8339664-9 (Version None)
Quarter: 2012Q2

REPORT INFORMATION
  Report Type: 
  Country: None (occurrence: None)
  Receive Date: 20120507
  Receipt Date: 20120503
  Transmission Date: 20120825
  Serious: Yes (Hospitalization, Other)
  Sender: FDA-Public Use
  Company Number: PHEH2007US05548

PATIENT
  Sex: Male
  Weight: 85.261 kg

DRUGS (79)
  1. OXYCODONE HCL [Concomitant]
     Dosage: 5 MG, UNK
  2. PREDNISONE TAB [Concomitant]
     Dosage: 20 MG, UNK
  3. CYMBALTA [Concomitant]
     Dosage: 60 MG, UNK
  4. PHENERGAN [Concomitant]
  5. VELCADE [Concomitant]
  6. CLINDAMYCIN [Concomitant]
     Dosage: 300 MG, TID
  7. LEXAPRO [Concomitant]
  8. DECADRON [Concomitant]
  9. OMEPRAZOLE [Concomitant]
  10. AREDIA [Suspect]
     Route: 042
  11. METOCLOPRAMIDE [Concomitant]
     Dosage: 10 MG, UNK
  12. LEVAQUIN [Concomitant]
     Dosage: 500 MG, UNK
  13. OXYCODONE HCL AND ACETAMINOPHEN [Concomitant]
     Dosage: 5 MG, UNK
  14. METOPROLOL TARTRATE [Concomitant]
     Dosage: 50 MG, UNK
  15. ALPRAZOLAM [Concomitant]
     Dosage: 0.25 MG, UNK
  16. EFFEXOR XR [Concomitant]
     Dosage: 37.5 MG, UNK
  17. LACTULOSE [Concomitant]
     Dosage: 10 G, UNK
  18. COMPRO [Concomitant]
     Dosage: 25 MG, UNK
  19. XANAX [Concomitant]
  20. GLUCOVANCE [Concomitant]
  21. MIRALAX [Concomitant]
  22. PREVACID [Concomitant]
     Dosage: 30 MG, UNK
  23. MORPHINE SULFATE [Concomitant]
     Dosage: 20 MG/ML, UNK
  24. AMOXICILLIN [Concomitant]
     Dosage: 500 MG, UNK
  25. AMITRIPTYLINE HCL [Concomitant]
     Dosage: 25 MG, UNK
  26. SYNTHROID [Concomitant]
     Dosage: 25 UG, UNK
  27. PENICILLIN VK [Concomitant]
     Dosage: 500 MG, UNK
  28. FAMVIR                                  /NET/ [Concomitant]
     Dosage: 500 MG, UNK
  29. AVELOX [Concomitant]
     Dosage: 300 MG, UNK
  30. CHLORHEXIDINE GLUCONATE [Concomitant]
     Dosage: 0.12 %, UNK
  31. DEXAMETHASONE W/DOXORUBICIN/VINCRISTINE [Concomitant]
     Dates: start: 20021001
  32. DIFLUCAN [Concomitant]
  33. ZOLOFT [Concomitant]
     Dosage: 50 MG, QD
     Route: 048
  34. METHADONE HCL [Concomitant]
     Dosage: 30 MG TID
  35. OXYLR [Concomitant]
     Dosage: 20 MG 1-2 TIMES PER DAY
  36. MINITRAN [Concomitant]
     Dosage: 0.2 MG/H, UNK
  37. NEXIUM [Concomitant]
     Dosage: 40 MG, UNK
  38. NYSTATIN [Concomitant]
     Dosage: 10000 U, UNK
  39. CARISOPRODOL [Concomitant]
     Dosage: 350 MG, UNK
  40. PAXIL [Concomitant]
     Dosage: 12.5 MG, UNK
  41. OXYFAST [Concomitant]
  42. ACYCLOVIR [Concomitant]
  43. CALCIUM [Concomitant]
  44. DEXAMETHASONE [Concomitant]
     Dosage: 4 MG, UNK
  45. PROCHLORPERAZINE [Concomitant]
     Dosage: 10 MG, UNK
  46. THALIDOMIDE [Concomitant]
  47. AUGMENTIN '125' [Concomitant]
  48. VIDAZA [Concomitant]
  49. REVLIMID [Concomitant]
  50. ATENOLOL [Concomitant]
     Dosage: 25 MG QD
  51. HYDROCODONE BITARTRATE AND ACETAMINOPHEN [Concomitant]
     Dosage: 7.5 MG, UNK
  52. FLOVENT [Concomitant]
     Dosage: 44 UG, UNK
  53. CIPRO [Concomitant]
     Dosage: 250 UG, UNK
  54. VALTREX [Concomitant]
     Dosage: 500 MG, UNK
  55. PROVIGIL [Concomitant]
     Dosage: 200 MG, UNK
  56. GLYBURIDE [Concomitant]
     Dosage: 1.25 MG, UNK
  57. FLUCONAZOLE [Concomitant]
     Dosage: 100 MG, UNK
  58. PERCOCET [Concomitant]
  59. NEURONTIN [Concomitant]
  60. CYTOXAN [Concomitant]
  61. KEFLEX [Concomitant]
  62. ZOMETA [Suspect]
     Route: 042
     Dates: end: 20081008
  63. PRILOSEC [Concomitant]
     Dosage: 20 MG, UNK
  64. NITROSTAT [Concomitant]
     Dosage: 0.4 MG, UNK
  65. DURAGESIC-100 [Concomitant]
     Dosage: 25 UG/HR, UNK
  66. VICODIN [Concomitant]
  67. PROCRIT                            /00909301/ [Concomitant]
     Dates: start: 20040101
  68. MAALOX                                  /NET/ [Concomitant]
  69. MYLANTA                                 /AUS/ [Concomitant]
  70. CLONAZEPAM [Concomitant]
  71. PROFEN II DM [Concomitant]
  72. BIAXIN [Concomitant]
     Dosage: 250 MG, UNK
  73. ZITHROMAX [Concomitant]
  74. SERTRALINE HYDROCHLORIDE [Concomitant]
     Dosage: 50 MG, UNK
  75. CALCIUM [Concomitant]
     Dosage: 600 MG, BID
  76. VITAMIN D [Concomitant]
     Dosage: 1000 MG, QD
  77. ALOXI [Concomitant]
  78. PAROXETINE [Concomitant]
  79. CHLORHEXAMED [Concomitant]

REACTIONS (100)
  - MULTIPLE MYELOMA [None]
  - HYPOAESTHESIA [None]
  - DRUG DEPENDENCE [None]
  - OEDEMA PERIPHERAL [None]
  - HYPOPHOSPHATAEMIA [None]
  - DEHYDRATION [None]
  - LEUKOPENIA [None]
  - BLOOD IMMUNOGLOBULIN A INCREASED [None]
  - LIP PAIN [None]
  - CARDIOMEGALY [None]
  - SPONDYLITIC MYELOPATHY [None]
  - ERYTHEMA [None]
  - BREAST SWELLING [None]
  - HAEMOPTYSIS [None]
  - CATARACT [None]
  - LOSS OF CONSCIOUSNESS [None]
  - EYE PAIN [None]
  - COUGH [None]
  - HYPERGLYCAEMIA [None]
  - ASPIRATION PLEURAL CAVITY [None]
  - FLANK PAIN [None]
  - DYSPNOEA EXERTIONAL [None]
  - MYOCLONUS [None]
  - PALPITATIONS [None]
  - CONJUNCTIVITIS INFECTIVE [None]
  - BALANCE DISORDER [None]
  - HYPERHIDROSIS [None]
  - BIOPSY BONE MARROW [None]
  - ANXIETY [None]
  - HERPES ZOSTER [None]
  - HEADACHE [None]
  - ROAD TRAFFIC ACCIDENT [None]
  - GYNAECOMASTIA [None]
  - MUCOSAL INFLAMMATION [None]
  - AFFECTIVE DISORDER [None]
  - VITAMIN B12 DEFICIENCY [None]
  - LIBIDO DECREASED [None]
  - RENAL PAIN [None]
  - PARAESTHESIA [None]
  - GASTROOESOPHAGEAL REFLUX DISEASE [None]
  - FALL [None]
  - LUMBAR SPINAL STENOSIS [None]
  - SPINAL DISORDER [None]
  - PAIN [None]
  - BLINDNESS TRANSIENT [None]
  - PYREXIA [None]
  - HYPOKALAEMIA [None]
  - NECK MASS [None]
  - DYSPHAGIA [None]
  - DEMYELINATING POLYNEUROPATHY [None]
  - BONE FISTULA [None]
  - MUSCULAR WEAKNESS [None]
  - VOMITING [None]
  - ROTATOR CUFF SYNDROME [None]
  - PAPILLOEDEMA [None]
  - NEOPLASM MALIGNANT [None]
  - GINGIVAL BLEEDING [None]
  - INJURY [None]
  - GINGIVAL SWELLING [None]
  - TYPE 2 DIABETES MELLITUS [None]
  - BACK PAIN [None]
  - OSTEOARTHRITIS [None]
  - FATIGUE [None]
  - ASBESTOSIS [None]
  - ORAL PAIN [None]
  - VISION BLURRED [None]
  - DIZZINESS [None]
  - TRICUSPID VALVE INCOMPETENCE [None]
  - SWELLING [None]
  - GENERALISED OEDEMA [None]
  - PTERYGIUM [None]
  - INFECTION [None]
  - PAIN IN JAW [None]
  - CHEST PAIN [None]
  - NECK PAIN [None]
  - MOUTH ULCERATION [None]
  - MALAISE [None]
  - DECREASED APPETITE [None]
  - PLEURAL EFFUSION [None]
  - NAUSEA [None]
  - SLEEP APNOEA SYNDROME [None]
  - DYSURIA [None]
  - MUSCLE SPASMS [None]
  - VIRAL UPPER RESPIRATORY TRACT INFECTION [None]
  - MUSCLE TWITCHING [None]
  - SYNCOPE [None]
  - AORTIC STENOSIS [None]
  - ASTHENIA [None]
  - BREAST PAIN [None]
  - CACHEXIA [None]
  - OSTEONECROSIS OF JAW [None]
  - BONE PAIN [None]
  - ANAEMIA [None]
  - PANCYTOPENIA [None]
  - PNEUMONIA [None]
  - SINUSITIS [None]
  - GLAUCOMA [None]
  - CHILLS [None]
  - WEIGHT DECREASED [None]
  - APHASIA [None]
